FAERS Safety Report 6641898-6 (Version None)
Quarter: 2010Q1

REPORT INFORMATION
  Report Type: 
  Country: None (occurrence: None)
  Receive Date: 20100319
  Receipt Date: 20100309
  Transmission Date: 20100710
  Serious: Yes (Other)
  Sender: FDA-Public Use
  Company Number: SI-NOVOPROD-305609

PATIENT
  Age: 79 Year
  Sex: Female

DRUGS (5)
  1. LEVEMIR [Suspect]
     Indication: DIABETES MELLITUS
     Dosage: 12 U, QD
     Route: 058
     Dates: start: 20090929, end: 20100114
  2. BLOXAN [Concomitant]
     Indication: HYPERTENSION
     Dosage: 100 MG, QD
     Route: 048
     Dates: start: 20000101
  3. KETONAL                            /00321701/ [Concomitant]
     Dosage: 150 MG, QD
     Route: 048
     Dates: start: 20080101
  4. ANGISED [Concomitant]
     Indication: ANGINA PECTORIS
     Dosage: 0.5 MG, UNK
     Route: 060
     Dates: start: 20000101
  5. GLURENORM [Concomitant]
     Indication: DIABETES MELLITUS
     Dosage: 30 MG, QD
     Route: 048
     Dates: start: 20000101

REACTIONS (6)
  - EYELID OEDEMA [None]
  - FACE OEDEMA [None]
  - INJECTION SITE ERYTHEMA [None]
  - INJECTION SITE PRURITUS [None]
  - LIP SWELLING [None]
  - URTICARIA [None]
